FAERS Safety Report 18204847 (Version 1)
Quarter: 2020Q3

REPORT INFORMATION
  Report Type: Spontaneous
  Country: US (occurrence: US)
  Receive Date: 20200827
  Receipt Date: 20200827
  Transmission Date: 20201103
  Serious: No
  Sender: FDA-Public Use
  Company Number: US-CIPHER-2020-US-000254

PATIENT
  Sex: Female

DRUGS (1)
  1. CONZIP [Suspect]
     Active Substance: TRAMADOL HYDROCHLORIDE
     Indication: SAPOVIRUS TEST POSITIVE
     Route: 048

REACTIONS (1)
  - Product dose omission issue [Unknown]
